FAERS Safety Report 7478342-5 (Version None)
Quarter: 2011Q2

REPORT INFORMATION
  Report Type: 
  Country: None (occurrence: None)
  Receive Date: 20110513
  Receipt Date: 20110428
  Transmission Date: 20111010
  Serious: No
  Sender: FDA-Public Use
  Company Number: US-B.I. PHARMACEUTICALS,INC./RIDGEFIELD-2011-BP-12046BP

PATIENT
  Sex: Female

DRUGS (9)
  1. DIOVAN HCT [Concomitant]
     Indication: HYPERTENSION
     Route: 048
  2. SPIRIVA [Suspect]
     Route: 048
     Dates: start: 20110428
  3. FOLIC ACID [Concomitant]
     Indication: ANAEMIA
     Dosage: 25 MG
     Route: 048
  4. EFFEXOR [Concomitant]
     Indication: DEPRESSION
     Dosage: 75 MG
     Route: 048
  5. LIPIZIDE [Concomitant]
     Indication: TYPE 2 DIABETES MELLITUS
     Dosage: 5 MG
     Route: 048
  6. NEXIUM [Concomitant]
     Indication: GASTROOESOPHAGEAL REFLUX DISEASE
     Dosage: 80 MG
     Route: 048
  7. SPIRIVA [Suspect]
     Indication: CHRONIC OBSTRUCTIVE PULMONARY DISEASE
     Dosage: 18 MCG
     Route: 055
     Dates: start: 20101031
  8. TIZANIDINE [Concomitant]
     Indication: ARTHRITIS
     Dosage: 4 MG
     Route: 048
  9. ADVAIR DISKUS 100/50 [Concomitant]
     Indication: CHRONIC OBSTRUCTIVE PULMONARY DISEASE
     Route: 055

REACTIONS (2)
  - INCORRECT ROUTE OF DRUG ADMINISTRATION [None]
  - URINARY RETENTION [None]
